FAERS Safety Report 16678784 (Version 1)
Quarter: 2019Q3

REPORT INFORMATION
  Report Type: Spontaneous
  Country: US (occurrence: US)
  Receive Date: 20190807
  Receipt Date: 20190807
  Transmission Date: 20191004
  Serious: Yes (Other)
  Sender: FDA-Public Use
  Company Number: US-PERRIGO-19US008260

PATIENT
  Age: 1 Year
  Sex: Female
  Weight: 16.33 kg

DRUGS (1)
  1. LICE SHAMPOO [Suspect]
     Active Substance: PIPERONYL BUTOXIDE\PYRETHRUM EXTRACT
     Indication: LICE INFESTATION
     Dosage: 30 ML, SINGLE
     Route: 061
     Dates: start: 20190706, end: 20190706

REACTIONS (4)
  - Visual impairment [Recovering/Resolving]
  - Hypersensitivity [Recovering/Resolving]
  - Chemical burns of eye [Recovering/Resolving]
  - Corneal abrasion [Recovering/Resolving]

NARRATIVE: CASE EVENT DATE: 20190706
